FAERS Safety Report 24662427 (Version 2)
Quarter: 2025Q3

REPORT INFORMATION
  Report Type: Spontaneous
  Country: US (occurrence: US)
  Receive Date: 20241125
  Receipt Date: 20250716
  Transmission Date: 20251021
  Serious: No
  Sender: NOVO NORDISK
  Company Number: US-NOVOPROD-1281092

PATIENT
  Sex: Female

DRUGS (2)
  1. OZEMPIC [Suspect]
     Active Substance: SEMAGLUTIDE
     Indication: Product used for unknown indication
     Route: 058
  2. XULTOPHY 100/3.6 [Suspect]
     Active Substance: INSULIN DEGLUDEC\LIRAGLUTIDE
     Indication: Product used for unknown indication
     Route: 058

REACTIONS (8)
  - Neuropathy peripheral [Unknown]
  - Weight increased [Unknown]
  - Muscle spasms [Unknown]
  - Headache [Not Recovered/Not Resolved]
  - Visual impairment [Unknown]
  - Dehydration [Unknown]
  - Nausea [Unknown]
  - Injection site bruising [Unknown]
